FAERS Safety Report 5908191-8 (Version None)
Quarter: 2008Q4

REPORT INFORMATION
  Report Type: 
  Country: None (occurrence: None)
  Receive Date: 20081003
  Receipt Date: 20080926
  Transmission Date: 20090506
  Serious: Yes (Hospitalization)
  Sender: FDA-Public Use
  Company Number: US-AMGEN-US307774

PATIENT
  Sex: Male

DRUGS (16)
  1. CINACALCET [Suspect]
     Indication: HYPERPARATHYROIDISM SECONDARY
     Route: 048
     Dates: start: 20070830, end: 20080821
  2. CALCITRIOL [Concomitant]
     Route: 042
  3. ZANTAC [Concomitant]
     Route: 048
  4. LISINOPRIL [Concomitant]
     Route: 048
  5. SIMVASTATIN [Concomitant]
     Route: 048
  6. LASIX [Concomitant]
     Route: 048
  7. ALBUTEROL [Concomitant]
     Route: 055
  8. CARBAMAZEPINE [Concomitant]
     Route: 048
  9. NEPHRO-VITE [Concomitant]
     Route: 048
  10. MINOXIDIL [Concomitant]
     Route: 048
  11. FLONASE [Concomitant]
     Route: 045
  12. HYDROMORPHONE HCL [Concomitant]
     Route: 048
  13. ATENOLOL [Concomitant]
     Route: 048
  14. PLAVIX [Concomitant]
     Route: 048
  15. FENTANYL [Concomitant]
     Route: 062
  16. PHOSLO [Concomitant]
     Route: 048

REACTIONS (3)
  - CONVULSION [None]
  - HYPOAESTHESIA [None]
  - HYPOCALCAEMIA [None]
